FAERS Safety Report 6052925-1 (Version None)
Quarter: 2009Q1

REPORT INFORMATION
  Report Type: 
  Country: None (occurrence: None)
  Receive Date: 20090127
  Receipt Date: 20090120
  Transmission Date: 20090719
  Serious: Yes (Hospitalization)
  Sender: FDA-Public Use
  Company Number: US-JNJFOC-20090105103

PATIENT
  Sex: Female
  Weight: 63.5 kg

DRUGS (3)
  1. RISPERDAL CONSTA [Suspect]
     Indication: SCHIZOAFFECTIVE DISORDER
     Route: 030
  2. YAZ [Concomitant]
     Indication: CONTRACEPTION
     Route: 048
  3. COGENTIN [Concomitant]
     Indication: ADVERSE DRUG REACTION
     Route: 065

REACTIONS (5)
  - ABDOMINAL PAIN [None]
  - AURA [None]
  - DIZZINESS [None]
  - HEADACHE [None]
  - NAUSEA [None]
